FAERS Safety Report 8844052 (Version 1)
Quarter: 2012Q4

REPORT INFORMATION
  Report Type: 
  Country: CA (occurrence: CA)
  Receive Date: 20121016
  Receipt Date: 20121016
  Transmission Date: 20130627
  Serious: Yes (Other)
  Sender: FDA-Public Use
  Company Number: CA-PFIZER INC-2012253278

PATIENT
  Age: 18 Year
  Sex: Female

DRUGS (3)
  1. ALESSE 28 [Suspect]
     Dosage: UNK
     Dates: start: 201210
  2. DEPAKENE [Concomitant]
     Indication: EPILEPSY
     Dosage: 400 mg, 2x/day
     Dates: start: 2002
  3. VYVANSE [Concomitant]
     Dosage: 50 mg, UNK

REACTIONS (1)
  - Epilepsy [Unknown]
